FAERS Safety Report 8618419-1 (Version None)
Quarter: 2012Q3

REPORT INFORMATION
  Report Type: 
  Country: None (occurrence: None)
  Receive Date: 20120824
  Receipt Date: 20120821
  Transmission Date: 20120928
  Serious: No
  Sender: FDA-Public Use
  Company Number: US-BIOGENIDEC-2012BI032611

PATIENT
  Sex: Male

DRUGS (1)
  1. AVONEX [Suspect]
     Indication: MULTIPLE SCLEROSIS
     Route: 030
     Dates: start: 20110225

REACTIONS (5)
  - MUSCLE TWITCHING [None]
  - DYSKINESIA [None]
  - MUSCULAR WEAKNESS [None]
  - RESTLESSNESS [None]
  - FATIGUE [None]
